FAERS Safety Report 25842657 (Version 2)
Quarter: 2025Q4

REPORT INFORMATION
  Report Type: Spontaneous
  Country: US (occurrence: US)
  Receive Date: 20250924
  Receipt Date: 20251209
  Transmission Date: 20260117
  Serious: Yes (Other)
  Sender: COOPERSURGICAL
  Company Number: US-COOPERSURGICAL, INC.-2025CPS006748

PATIENT
  Age: 42 Year
  Sex: Female
  Weight: 77.098 kg

DRUGS (1)
  1. PARAGARD T 380A [Suspect]
     Active Substance: COPPER
     Indication: Contraception
     Dosage: UNK
     Route: 015
     Dates: start: 20161201

REACTIONS (14)
  - Reproductive complication associated with device [Not Recovered/Not Resolved]
  - Laparotomy [Recovered/Resolved]
  - Laparoscopy [Recovered/Resolved]
  - Habitual abortion [Recovered/Resolved]
  - Device breakage [Not Recovered/Not Resolved]
  - Foreign body in urogenital tract [Not Recovered/Not Resolved]
  - Complication of device removal [Not Recovered/Not Resolved]
  - Uterine perforation [Recovered/Resolved]
  - Device dislocation [Not Recovered/Not Resolved]
  - Abortion spontaneous [Recovered/Resolved]
  - Emotional distress [Unknown]
  - Abnormal uterine bleeding [Unknown]
  - Vaginal haemorrhage [Unknown]
  - Pain [Unknown]

NARRATIVE: CASE EVENT DATE: 20170104
